FAERS Safety Report 6216704-4 (Version None)
Quarter: 2009Q2

REPORT INFORMATION
  Report Type: 
  Country: None (occurrence: None)
  Receive Date: 20090605
  Receipt Date: 20090602
  Transmission Date: 20091009
  Serious: Yes (Death)
  Sender: FDA-Public Use
  Company Number: US-JNJFOC-20090601479

PATIENT
  Age: 78 Year
  Sex: Male

DRUGS (4)
  1. INVEGA [Suspect]
     Indication: DEMENTIA
     Route: 048
  2. PAXIL [Concomitant]
     Indication: DEMENTIA
     Route: 048
  3. NAMENDA [Concomitant]
     Indication: DEMENTIA
     Route: 048
  4. EXELON [Concomitant]
     Indication: DEMENTIA
     Route: 062

REACTIONS (4)
  - ABDOMINAL PAIN UPPER [None]
  - DEATH [None]
  - MUSCULOSKELETAL STIFFNESS [None]
  - WRONG TECHNIQUE IN DRUG USAGE PROCESS [None]
